FAERS Safety Report 7002782-1 (Version None)
Quarter: 2010Q3

REPORT INFORMATION
  Report Type: 
  Country: None (occurrence: None)
  Receive Date: 20100920
  Receipt Date: 20100713
  Transmission Date: 20110219
  Serious: No
  Sender: FDA-Public Use
  Company Number: US-ASTRAZENECA-2010SE32580

PATIENT
  Age: 43 Year
  Sex: Male
  Weight: 68 kg

DRUGS (2)
  1. SEROQUEL XR [Suspect]
     Indication: SLEEP DISORDER
     Route: 048
     Dates: start: 20100601, end: 20100101
  2. SEROQUEL XR [Suspect]
     Route: 048

REACTIONS (1)
  - PRURITUS [None]
